FAERS Safety Report 5852309-2 (Version None)
Quarter: 2008Q3

REPORT INFORMATION
  Report Type: 
  Country: None (occurrence: None)
  Receive Date: 20080819
  Receipt Date: 20080808
  Transmission Date: 20090109
  Serious: Yes (Hospitalization, Other)
  Sender: FDA-Public Use
  Company Number: 51366

PATIENT
  Age: 52 Year
  Sex: Male

DRUGS (1)
  1. DEFEROXAMINE MESYLATE [Suspect]
     Indication: HAEMOLYTIC ANAEMIA
     Dosage: 2.0G DILUTED IN 100ML OF NORMAL SALINE/INFUSE

REACTIONS (8)
  - ANAEMIA MACROCYTIC [None]
  - IRON OVERLOAD [None]
  - KIDNEY FIBROSIS [None]
  - RENAL IMPAIRMENT [None]
  - RENAL INJURY [None]
  - RENAL TUBULAR ATROPHY [None]
  - RENAL TUBULAR DISORDER [None]
  - ULTRASOUND KIDNEY ABNORMAL [None]
